FAERS Safety Report 18656256 (Version 2)
Quarter: 2020Q4

REPORT INFORMATION
  Report Type: Spontaneous
  Country: US (occurrence: US)
  Receive Date: 20201223
  Receipt Date: 20201230
  Transmission Date: 20210114
  Serious: Yes (Other)
  Sender: FDA-Public Use
  Company Number: US-GLAXOSMITHKLINE-US2020AMR251378

PATIENT
  Sex: Male
  Weight: 77.1 kg

DRUGS (2)
  1. THERAFLU NOS [Suspect]
     Active Substance: ACETAMINOPHEN AND OR DEXTROMETHORPHAN AND OR DIPHENHYDRAMINE AND OR GUAIFENESIN AND OR PHENYLEPHRINE AND OR PSEUDOEPHEDRINE
     Indication: PRODUCT USED FOR UNKNOWN INDICATION
     Dosage: UNK
  2. VICKS NYQUIL COLD AND FLU [Suspect]
     Active Substance: ACETAMINOPHEN\DEXTROMETHORPHAN HYDROBROMIDE\DOXYLAMINE SUCCINATE
     Indication: PRODUCT USED FOR UNKNOWN INDICATION
     Dosage: UNK

REACTIONS (42)
  - Renal impairment [Unknown]
  - Anorectal disorder [Unknown]
  - Adrenal cyst [Unknown]
  - Abdominal tenderness [Unknown]
  - Acute kidney injury [Unknown]
  - Influenza [Unknown]
  - Haematuria [Unknown]
  - Palpitations [Unknown]
  - Chromaturia [Unknown]
  - Blood urine present [Unknown]
  - Diarrhoea [Unknown]
  - Oropharyngeal pain [Unknown]
  - Decreased appetite [Unknown]
  - Chills [Unknown]
  - Pallor [Unknown]
  - Abdominal pain [Unknown]
  - White blood cells urine positive [Unknown]
  - Red blood cells urine [Unknown]
  - Kidney infection [Unknown]
  - Renal failure [Unknown]
  - Abscess intestinal [Unknown]
  - Gastric cyst [Unknown]
  - Nausea [Unknown]
  - Pyrexia [Unknown]
  - Fatigue [Unknown]
  - Abdominal rebound tenderness [Unknown]
  - Abdominal discomfort [Unknown]
  - Diverticulitis [Unknown]
  - Vomiting [Unknown]
  - Blood pressure increased [Unknown]
  - Renal cyst [Unknown]
  - Diverticulum intestinal [Unknown]
  - Heart rate decreased [Unknown]
  - Dehydration [Unknown]
  - Diverticular perforation [Unknown]
  - Large intestine perforation [Unknown]
  - Protein urine present [Unknown]
  - Weight decreased [Unknown]
  - Dysuria [Unknown]
  - Abdominal pain lower [Unknown]
  - Abdominal rigidity [Unknown]
  - Urine abnormality [Unknown]
